FAERS Safety Report 11340355 (Version 3)
Quarter: 2017Q1

REPORT INFORMATION
  Report Type: Other
  Country: US (occurrence: US)
  Receive Date: 20150805
  Receipt Date: 20170328
  Transmission Date: 20170428
  Serious: Yes (Other)
  Sender: FDA-Public Use
  Company Number: US-ACORDA-ACO_114915_2015

PATIENT
  Age: 50 Year
  Sex: Female
  Weight: 81.63 kg

DRUGS (13)
  1. AMPYRA [Suspect]
     Active Substance: DALFAMPRIDINE
     Indication: MULTIPLE SCLEROSIS
     Dosage: 10 MG, Q 12 HRS
     Route: 048
     Dates: start: 2014
  2. OXTELLAR XR [Suspect]
     Active Substance: OXCARBAZEPINE
     Indication: BRAIN INJURY
     Dosage: 300 MG, QD
     Route: 048
     Dates: start: 20170105
  3. PHENERGAN [Concomitant]
     Active Substance: PROMETHAZINE HYDROCHLORIDE
     Indication: PRODUCT USED FOR UNKNOWN INDICATION
     Dosage: 25 MG, TID
     Route: 065
  4. JINTELI [Suspect]
     Active Substance: ETHINYL ESTRADIOL\NORETHINDRONE ACETATE
     Indication: PRODUCT USED FOR UNKNOWN INDICATION
     Dosage: 5 ??G, UNK
     Route: 065
  5. INTERFERON B [Concomitant]
     Indication: MULTIPLE SCLEROSIS
     Dosage: 1 G, EVERY OTHER DAY
     Route: 065
  6. DANTRIUM [Concomitant]
     Active Substance: DANTROLENE SODIUM
     Indication: PRODUCT USED FOR UNKNOWN INDICATION
     Dosage: 25 MG, TID AND PRN
     Route: 065
  7. AMPYRA [Suspect]
     Active Substance: DALFAMPRIDINE
     Dosage: 10 MG, BID
     Route: 048
  8. ATIVAN [Concomitant]
     Active Substance: LORAZEPAM
     Indication: PRODUCT USED FOR UNKNOWN INDICATION
     Dosage: UNK
     Route: 065
  9. NEURONTIN [Concomitant]
     Active Substance: GABAPENTIN
     Indication: PRODUCT USED FOR UNKNOWN INDICATION
     Dosage: 1800 MG, QD
     Route: 065
  10. LEXAPRO [Concomitant]
     Active Substance: ESCITALOPRAM OXALATE
     Indication: PRODUCT USED FOR UNKNOWN INDICATION
     Dosage: 20 MG, QD
     Route: 065
  11. BETASERON [Concomitant]
     Active Substance: INTERFERON BETA-1B
     Indication: PRODUCT USED FOR UNKNOWN INDICATION
     Dosage: UNK
     Route: 065
  12. AMPYRA [Suspect]
     Active Substance: DALFAMPRIDINE
     Indication: GAIT DISTURBANCE
     Dosage: 10 MG, QD
     Route: 048
  13. ZANAFLEX [Suspect]
     Active Substance: TIZANIDINE HYDROCHLORIDE
     Indication: PRODUCT USED FOR UNKNOWN INDICATION
     Dosage: 6 MG, TID
     Route: 065

REACTIONS (17)
  - Injection site bruising [Unknown]
  - Body temperature increased [Not Recovered/Not Resolved]
  - Delirium [Unknown]
  - Delirium [Recovered/Resolved]
  - Injection site pain [Unknown]
  - Injection site irritation [Unknown]
  - Surgery [Unknown]
  - Bedridden [Recovered/Resolved]
  - Dysgeusia [Unknown]
  - Headache [Recovered/Resolved]
  - Therapeutic response unexpected [Recovered/Resolved]
  - Abdominal pain [Unknown]
  - Anxiety [Unknown]
  - Injection site urticaria [Unknown]
  - Hyperhidrosis [Not Recovered/Not Resolved]
  - Drug interaction [Unknown]
  - Burning sensation [Not Recovered/Not Resolved]

NARRATIVE: CASE EVENT DATE: 2014
